FAERS Safety Report 7948176-3 (Version None)
Quarter: 2011Q4

REPORT INFORMATION
  Report Type: 
  Country: None (occurrence: None)
  Receive Date: 20111125
  Receipt Date: 20111118
  Transmission Date: 20120403
  Serious: Yes (Other)
  Sender: FDA-Public Use
  Company Number: 1000025600

PATIENT
  Sex: Female

DRUGS (2)
  1. VIIBRYD [Suspect]
     Dosage: 40 MG (40 MG,1 IN 1 D),ORAL
     Route: 048
  2. VIIBRYD [Suspect]
     Dosage: 10 MG (10 MG,1 IN 1 D),ORAL ; 20 MG (20 MG,1 IN 1 D),ORAL
     Route: 048

REACTIONS (1)
  - SUICIDAL IDEATION [None]
